FAERS Safety Report 8767083 (Version 2)
Quarter: 2012Q4

REPORT INFORMATION
  Report Type: 
  Country: NL (occurrence: NL)
  Receive Date: 20120904
  Receipt Date: 20120910
  Transmission Date: 20130627
  Serious: Yes (Hospitalization)
  Sender: FDA-Public Use
  Company Number: NL-JNJFOC-20120900856

PATIENT
  Sex: Female

DRUGS (5)
  1. XARELTO [Suspect]
     Indication: HYPERCOAGULATION
     Route: 048
     Dates: start: 201202
  2. XARELTO [Suspect]
     Indication: THROMBOSIS PROPHYLAXIS
     Route: 048
     Dates: start: 201202
  3. MOVICOLON [Concomitant]
  4. PARACETAMOL [Concomitant]
  5. TRAMADOL [Concomitant]

REACTIONS (7)
  - Muscular weakness [Recovering/Resolving]
  - Motor dysfunction [Recovering/Resolving]
  - Motor dysfunction [Recovered/Resolved]
  - Fibromyalgia [Recovering/Resolving]
  - Hypoaesthesia [Recovering/Resolving]
  - Pain in extremity [Recovering/Resolving]
  - Syncope [Unknown]
